FAERS Safety Report 7355992-8 (Version None)
Quarter: 2011Q1

REPORT INFORMATION
  Report Type: 
  Country: None (occurrence: None)
  Receive Date: 20110310
  Receipt Date: 20110310
  Transmission Date: 20110831
  Serious: Yes (Hospitalization)
  Sender: FDA-Public Use
  Company Number: None

PATIENT
  Sex: Female
  Weight: 67.4 kg

DRUGS (2)
  1. CARBOPLATIN [Suspect]
     Dosage: 470 MG
     Dates: start: 20101018
  2. TAXOL [Suspect]
     Dosage: 140 MG
     Dates: start: 20101018

REACTIONS (10)
  - ABDOMINAL DISTENSION [None]
  - ABDOMINAL PAIN [None]
  - ASCITES [None]
  - PNEUMONIA ASPIRATION [None]
  - PYREXIA [None]
  - PERITONITIS [None]
  - VOMITING [None]
  - LEUKOCYTOSIS [None]
  - DIARRHOEA [None]
  - NAUSEA [None]
